FAERS Safety Report 11702634 (Version 1)
Quarter: 2015Q4

REPORT INFORMATION
  Report Type: Spontaneous
  Country: US (occurrence: None)
  Receive Date: 20151105
  Receipt Date: 20151105
  Transmission Date: 20160304
  Serious: Yes (Hospitalization, Other)
  Sender: FDA-Public Use
  Company Number: US-MDT-ADR-2015-02092

PATIENT
  Age: 56 Year
  Sex: Male

DRUGS (2)
  1. COMPOUNDED BACLOFEN INTRATHECAL (150 MCG/ML) [Suspect]
     Active Substance: BACLOFEN
     Indication: PAIN
     Dosage: 36 MCG/DAY
  2. BUPIVACAINE INTRATHECAL (20 MG/ML) [Suspect]
     Active Substance: BUPIVACAINE
     Dosage: 4.8 MG/DAY

REACTIONS (4)
  - Hyperhidrosis [None]
  - Discomfort [None]
  - Drug withdrawal syndrome [None]
  - Device power source issue [None]
